FAERS Safety Report 11246724 (Version 4)
Quarter: 2016Q1

REPORT INFORMATION
  Report Type: Report from Study
  Country: PL (occurrence: PL)
  Receive Date: 20150708
  Receipt Date: 20160215
  Transmission Date: 20160525
  Serious: Yes (Hospitalization, Other)
  Sender: FDA-Public Use
  Company Number: PHHY2015PL079911

PATIENT
  Age: 2 Year
  Sex: Male

DRUGS (4)
  1. EXJADE [Suspect]
     Active Substance: DEFERASIROX
     Indication: SERUM FERRITIN INCREASED
     Dosage: 125 MG, QD (15 MG/KG)
     Route: 065
     Dates: start: 201312
  2. EXJADE [Suspect]
     Active Substance: DEFERASIROX
     Indication: ANAEMIA
     Dosage: 250 MG, QD (32 MG/KG)
     Route: 065
     Dates: start: 201306
  3. EXJADE [Suspect]
     Active Substance: DEFERASIROX
     Dosage: 125 MG, QD (15 MG/KG)
     Route: 065
     Dates: start: 201412, end: 20150120
  4. EXJADE [Suspect]
     Active Substance: DEFERASIROX
     Dosage: UNK
     Route: 065
     Dates: start: 20150401

REACTIONS (12)
  - Skin discolouration [Unknown]
  - Thirst decreased [Unknown]
  - Decreased appetite [Unknown]
  - Renal tubular disorder [Not Recovered/Not Resolved]
  - Gingival oedema [Unknown]
  - Electrolyte depletion [Unknown]
  - Electrolyte imbalance [Unknown]
  - Vomiting [Unknown]
  - Product use issue [Unknown]
  - Diabetic coma [Unknown]
  - Oral pain [Unknown]
  - Gastroenteritis [Unknown]

NARRATIVE: CASE EVENT DATE: 201501
